FAERS Safety Report 21636680 (Version 1)
Quarter: 2022Q4

REPORT INFORMATION
  Report Type: Spontaneous
  Country: US (occurrence: US)
  Receive Date: 20221124
  Receipt Date: 20221124
  Transmission Date: 20230113
  Serious: No
  Sender: FDA-Public Use
  Company Number: None

PATIENT
  Age: 72 Year
  Sex: Male

DRUGS (3)
  1. RIFAMPIN [Suspect]
     Active Substance: RIFAMPIN
     Indication: Mycobacterium avium complex infection
     Route: 065
     Dates: start: 202110
  2. ETHAMBUTOL HYDROCHLORIDE [Suspect]
     Active Substance: ETHAMBUTOL HYDROCHLORIDE
     Indication: Mycobacterium avium complex infection
     Route: 065
     Dates: start: 202110
  3. CLARITHROMYCIN [Suspect]
     Active Substance: CLARITHROMYCIN
     Indication: Mycobacterium avium complex infection
     Route: 065
     Dates: start: 202110

REACTIONS (3)
  - Drug intolerance [Unknown]
  - Rash [Recovered/Resolved]
  - Product use in unapproved indication [Unknown]

NARRATIVE: CASE EVENT DATE: 20211001
